FAERS Safety Report 9747655 (Version 1)
Quarter: 2013Q4

REPORT INFORMATION
  Report Type: Spontaneous
  Country: US (occurrence: None)
  Receive Date: 20131205
  Receipt Date: 20131205
  Transmission Date: 20140711
  Serious: Yes (Other)
  Sender: FDA-Public Use
  Company Number: 2042820

PATIENT
  Age: 36 Year
  Sex: Female
  Weight: 83.1 kg

DRUGS (4)
  1. LIDOCAINE HCL [Suspect]
     Indication: HEADACHE
     Route: 050
     Dates: start: 20131115
  2. LIDOCAINE HCL [Suspect]
     Indication: RADICULOPATHY
     Route: 050
     Dates: start: 20131115
  3. METHYLPREDNISOLONE [Suspect]
     Indication: HEADACHE
     Route: 050
     Dates: start: 20131115
  4. METHYLPREDNISOLONE [Suspect]
     Indication: RADICULOPATHY
     Route: 050
     Dates: start: 20131115

REACTIONS (2)
  - Pain [None]
  - Abscess [None]
